FAERS Safety Report 7803631-1 (Version None)
Quarter: 2011Q4

REPORT INFORMATION
  Report Type: 
  Country: None (occurrence: None)
  Receive Date: 20111010
  Receipt Date: 20110928
  Transmission Date: 20120403
  Serious: Yes (Hospitalization)
  Sender: FDA-Public Use
  Company Number: US-BIOGENIDEC-2011BI035014

PATIENT
  Age: 49 Year
  Sex: Female
  Weight: 68 kg

DRUGS (22)
  1. POLYETHYLENE GLYCOL [Concomitant]
     Route: 048
  2. CHOLECALCIFEROL [Concomitant]
     Route: 048
  3. AVONEX [Concomitant]
     Indication: MULTIPLE SCLEROSIS
     Route: 030
     Dates: start: 19980501
  4. BACLOFEN [Concomitant]
     Route: 048
  5. BOTULINUM TOXIN TYPE A [Concomitant]
     Route: 030
  6. FISH OIL-OMEGA-3-FATTY ACIDS [Concomitant]
     Route: 048
  7. ESOMEPRAZOLE SODIUM [Concomitant]
     Route: 048
  8. DOCUSATE SODIUM [Concomitant]
     Route: 048
  9. DIPHENHYDRAMINE HCL [Concomitant]
     Indication: PREMEDICATION
     Route: 048
  10. ACETAMINOPHEN [Concomitant]
     Indication: PREMEDICATION
     Route: 048
  11. TYSABRI [Suspect]
     Indication: MULTIPLE SCLEROSIS
     Route: 042
     Dates: start: 20110421
  12. TYSABRI [Suspect]
     Route: 042
     Dates: start: 20080122, end: 20100816
  13. BUPROPION HCL [Concomitant]
     Route: 048
  14. BISACODYL [Concomitant]
     Indication: CONSTIPATION
     Route: 054
  15. MULTI-VITAMIN [Concomitant]
     Route: 048
  16. ASCORBIC ACID [Concomitant]
     Route: 048
  17. BACLOFEN [Concomitant]
     Route: 037
  18. NAPROXEN [Concomitant]
     Route: 048
  19. CLONAZEPAM [Concomitant]
  20. CITALOPRAM [Concomitant]
     Route: 048
  21. HYDROCHLOROTHIAZIDE [Concomitant]
     Route: 048
  22. TIZANIDINE HCL [Concomitant]
     Route: 048

REACTIONS (6)
  - HAEMOLYTIC ANAEMIA [None]
  - MULTIPLE SCLEROSIS RELAPSE [None]
  - DEPRESSED LEVEL OF CONSCIOUSNESS [None]
  - RESPIRATORY FAILURE [None]
  - RECTAL ULCER HAEMORRHAGE [None]
  - ENTEROCOCCAL SEPSIS [None]
